FAERS Safety Report 8847059 (Version 1)
Quarter: 2012Q4

REPORT INFORMATION
  Report Type: 
  Country: ES (occurrence: ES)
  Receive Date: 20121018
  Receipt Date: 20121018
  Transmission Date: 20130627
  Serious: Yes (Other)
  Sender: FDA-Public Use
  Company Number: ES-UCBSA-068904

PATIENT
  Age: 62 Year
  Sex: Female

DRUGS (2)
  1. NEUPRO [Suspect]
     Indication: PARKINSON^S DISEASE
     Route: 062
     Dates: start: 20120904, end: 20120921
  2. NEUPRO [Suspect]
     Indication: PARKINSON^S DISEASE
     Route: 062
     Dates: start: 201209

REACTIONS (1)
  - Supraventricular tachycardia [Recovering/Resolving]
